FAERS Safety Report 16282393 (Version 1)
Quarter: 2019Q2

REPORT INFORMATION
  Report Type: Report from Study
  Country: None (occurrence: FR)
  Receive Date: 20190507
  Receipt Date: 20190507
  Transmission Date: 20190711
  Serious: Yes (Hospitalization)
  Sender: FDA-Public Use
  Company Number: FR-ABBVIE-19S-056-2771561-00

PATIENT
  Age: 83 Year
  Sex: Female

DRUGS (1)
  1. DUODOPA [Suspect]
     Active Substance: CARBIDOPA\LEVODOPA
     Indication: PARKINSON^S DISEASE
     Route: 050
     Dates: start: 201407

REACTIONS (2)
  - Femoral neck fracture [Unknown]
  - Anaemia [Unknown]

NARRATIVE: CASE EVENT DATE: 20190329
